FAERS Safety Report 15096214 (Version 1)
Quarter: 2018Q2

REPORT INFORMATION
  Report Type: Spontaneous
  Country: US (occurrence: US)
  Receive Date: 20180609
  Receipt Date: 20180609
  Transmission Date: 20180711
  Serious: No
  Sender: FDA-Public Use
  Company Number: None

PATIENT
  Age: 34 Year
  Sex: Female
  Weight: 65.25 kg

DRUGS (7)
  1. EXCEDRIN MIGRAINE [Concomitant]
     Active Substance: ACETAMINOPHEN\ASPIRIN\CAFFEINE
  2. YAZ [Concomitant]
     Active Substance: DROSPIRENONE\ETHINYL ESTRADIOL
  3. MAGNESIUM CIRATE [Concomitant]
  4. METHYLPHENIDATE OSM ER 18 MG TAB TRI [Suspect]
     Active Substance: METHYLPHENIDATE HYDROCHLORIDE
     Indication: HYPERSOMNIA
     Dosage: ?          QUANTITY:1 TABLET(S);?
     Route: 048
     Dates: start: 20180606, end: 20180609
  5. CITALOPRAM [Concomitant]
     Active Substance: CITALOPRAM HYDROBROMIDE
  6. LORAZEPAM. [Concomitant]
     Active Substance: LORAZEPAM
  7. PRE-NATAL VITAMINS [Concomitant]

REACTIONS (7)
  - Depression [None]
  - Irritability [None]
  - Drug ineffective [None]
  - Somnolence [None]
  - Pruritus generalised [None]
  - Therapeutic response changed [None]
  - Product substitution issue [None]

NARRATIVE: CASE EVENT DATE: 20180606
